FAERS Safety Report 5441652-7 (Version None)
Quarter: 2007Q3

REPORT INFORMATION
  Report Type: 
  Country: None (occurrence: None)
  Receive Date: 20070904
  Receipt Date: 20070828
  Transmission Date: 20080115
  Serious: Yes (Death, Hospitalization)
  Sender: FDA-Public Use
  Company Number: US-SANOFI-SYNTHELABO-F03200700151

PATIENT
  Sex: Male

DRUGS (13)
  1. M.V.I. [Concomitant]
     Dosage: UNK
     Route: 048
  2. LIPITOR [Concomitant]
     Dosage: UNK
     Route: 048
  3. DIGITEK [Concomitant]
     Dosage: UNK
     Route: 048
  4. PEPCID [Concomitant]
     Dosage: UNK
     Route: 048
  5. CARDIZEM [Concomitant]
     Dosage: UNK
     Route: 048
  6. COZAAR [Concomitant]
     Dosage: UNK
     Route: 048
  7. COUMADIN [Concomitant]
     Dosage: UNK
     Route: 048
  8. LEUCOVORIN CALCIUM [Suspect]
     Indication: COLORECTAL CANCER
     Dosage: 400 MG/M2 (800 MG) EVERY 2 WEEKS
     Route: 042
     Dates: start: 20070709, end: 20070709
  9. FLUOROURACIL INJ [Suspect]
     Indication: COLORECTAL CANCER
     Dosage: 300 MG/M2 (606 MG FOLLOWED BY 3636 MG) EVERY 2 WEEKS
     Route: 042
     Dates: start: 20070709, end: 20070711
  10. BEVACIZUMAB [Suspect]
     Indication: COLORECTAL CANCER
     Route: 042
     Dates: start: 20070709, end: 20070709
  11. OXALIPLATIN [Suspect]
     Indication: COLORECTAL CANCER
     Dosage: 65 MG/M2 (131.3 MG) EVERY 2 WEEKS
     Route: 042
     Dates: start: 20070709, end: 20070709
  12. MEGACE [Concomitant]
     Dosage: UNK
     Route: 048
  13. NYSTATIN [Concomitant]
     Dosage: UNK
     Route: 065

REACTIONS (3)
  - DEHYDRATION [None]
  - PARANEOPLASTIC SYNDROME [None]
  - SEPSIS [None]
